FAERS Safety Report 16314351 (Version 2)
Quarter: 2019Q2

REPORT INFORMATION
  Report Type: Spontaneous
  Country: US (occurrence: US)
  Receive Date: 20190515
  Receipt Date: 20190528
  Transmission Date: 20190711
  Serious: Yes (Hospitalization, Other)
  Sender: FDA-Public Use
  Company Number: US-NEUROCRINE BIOSCIENCES INC.-2019NBI01135

PATIENT
  Age: 43 Year
  Sex: Male

DRUGS (10)
  1. INGREZZA [Suspect]
     Active Substance: VALBENAZINE
     Indication: TARDIVE DYSKINESIA
     Route: 048
     Dates: start: 20190409, end: 20190416
  2. LISINOPRIL. [Concomitant]
     Active Substance: LISINOPRIL
  3. SEROQUEL [Concomitant]
     Active Substance: QUETIAPINE FUMARATE
  4. OXYCODONE [Concomitant]
     Active Substance: OXYCODONE
  5. PROPRANOLOL [Concomitant]
     Active Substance: PROPRANOLOL HYDROCHLORIDE
  6. INGREZZA [Suspect]
     Active Substance: VALBENAZINE
     Route: 048
     Dates: start: 20190417, end: 20190427
  7. DULOXETINE. [Concomitant]
     Active Substance: DULOXETINE
  8. NALOXONE [Concomitant]
     Active Substance: NALOXONE
  9. GABAPENTIN. [Concomitant]
     Active Substance: GABAPENTIN
  10. GUANFACINE. [Concomitant]
     Active Substance: GUANFACINE

REACTIONS (6)
  - Hallucination [Recovering/Resolving]
  - Liver function test abnormal [Recovered/Resolved]
  - Heart rate decreased [Recovering/Resolving]
  - Renal failure [Recovering/Resolving]
  - Hypotension [Recovered/Resolved]
  - Urinary retention [Recovering/Resolving]

NARRATIVE: CASE EVENT DATE: 201904
